FAERS Safety Report 8803372 (Version 1)
Quarter: 2012Q4

REPORT INFORMATION
  Report Type: 
  Country: CH (occurrence: CH)
  Receive Date: 20120924
  Receipt Date: 20120924
  Transmission Date: 20130627
  Serious: Yes (Death, Hospitalization, Other)
  Sender: FDA-Public Use
  Company Number: PHHY2012CH081487

PATIENT
  Age: 68 Year
  Sex: Female

DRUGS (6)
  1. CICLOSPORIN [Suspect]
     Indication: HEART TRANSPLANT
  2. VORICONAZOLE [Suspect]
     Indication: BRONCHOPULMONARY ASPERGILLOSIS
  3. METHYLPREDNISOLONE [Suspect]
     Indication: HEART TRANSPLANT
  4. MYCOPHENOLATE MOFETIL [Suspect]
     Indication: HEART TRANSPLANT
  5. STEROIDS NOS [Suspect]
     Indication: HEART TRANSPLANT
  6. ANTITHYMOCYTE IMMUNOGLOBULIN [Suspect]
     Indication: HEART TRANSPLANT

REACTIONS (6)
  - Bronchopulmonary aspergillosis [Fatal]
  - Renal failure acute [Unknown]
  - Pseudomonal bacteraemia [Unknown]
  - Pneumonia [Unknown]
  - Hallucination [Unknown]
  - Continuous haemodiafiltration [None]
